FAERS Safety Report 13065134 (Version 5)
Quarter: 2019Q2

REPORT INFORMATION
  Report Type: Report from Study
  Country: BE (occurrence: BE)
  Receive Date: 20161227
  Receipt Date: 20190412
  Transmission Date: 20190711
  Serious: Yes (Other)
  Sender: FDA-Public Use
  Company Number: BE-ASCEND THERAPEUTICS-1061297

PATIENT
  Age: 53 Year
  Sex: Male

DRUGS (2)
  1. CYPROTERONE ACETATE (CYPROTERONE ACETATE) [Suspect]
     Active Substance: CYPROTERONE ACETATE
  2. ESTROGEL [Suspect]
     Active Substance: ESTRADIOL
     Indication: GENDER DYSPHORIA
     Route: 062

REACTIONS (6)
  - Headache [Recovering/Resolving]
  - Meningioma [Recovering/Resolving]
  - Headache [Unknown]
  - Condition aggravated [Recovering/Resolving]
  - Off label use [None]
  - Nuclear magnetic resonance imaging abnormal [Recovering/Resolving]
